FAERS Safety Report 5511577-7 (Version None)
Quarter: 2007Q4

REPORT INFORMATION
  Report Type: 
  Country: None (occurrence: None)
  Receive Date: 20071109
  Receipt Date: 20071102
  Transmission Date: 20080405
  Serious: Yes (Other)
  Sender: FDA-Public Use
  Company Number: PHFR2007GB03259

PATIENT
  Age: 59 Year
  Sex: Female
  Weight: 57 kg

DRUGS (2)
  1. FEMARA [Suspect]
     Dosage: 2.5MG DAILY
     Route: 048
     Dates: start: 20070702, end: 20070731
  2. HERCEPTIN [Concomitant]
     Dosage: 336MG PER 3 WEEKS
     Route: 042
     Dates: start: 20061006, end: 20070914

REACTIONS (2)
  - DEPRESSION [None]
  - SUICIDAL IDEATION [None]
